FAERS Safety Report 22174026 (Version 1)
Quarter: 2023Q2

REPORT INFORMATION
  Report Type: Spontaneous
  Country: US (occurrence: US)
  Receive Date: 20230405
  Receipt Date: 20230405
  Transmission Date: 20230722
  Serious: No
  Sender: FDA-Public Use
  Company Number: US-Santen Inc-2023-USA-001292

PATIENT
  Sex: Female

DRUGS (1)
  1. FLAREX [Suspect]
     Active Substance: FLUOROMETHOLONE ACETATE
     Indication: Vitreous floaters
     Route: 047
     Dates: start: 20230201, end: 20230201

REACTIONS (5)
  - Eye pain [Recovering/Resolving]
  - Eye irritation [Recovering/Resolving]
  - Vision blurred [Recovering/Resolving]
  - Vitreous floaters [Recovered/Resolved]
  - Off label use [Unknown]

NARRATIVE: CASE EVENT DATE: 20230201
